FAERS Safety Report 23094462 (Version 1)
Quarter: 2023Q4

REPORT INFORMATION
  Report Type: Spontaneous
  Country: IN (occurrence: IN)
  Receive Date: 20231023
  Receipt Date: 20231023
  Transmission Date: 20240110
  Serious: Yes (Death, Hospitalization, Other)
  Sender: FDA-Public Use
  Company Number: IN-SA-2021SA381163

PATIENT
  Sex: Female

DRUGS (4)
  1. HEPARIN [Suspect]
     Active Substance: HEPARIN SODIUM
     Indication: Anticoagulant therapy
     Dosage: MEAN DOSE = 22,053 ? 4889U
  2. ENOXAPARIN SODIUM [Suspect]
     Active Substance: ENOXAPARIN SODIUM
     Indication: Anticoagulant therapy
     Dosage: 120 MG (MEAN DOSE)
  3. WARFARIN SODIUM [Suspect]
     Active Substance: WARFARIN SODIUM
     Indication: Anticoagulant therapy
     Dosage: MEAN DOSE = 6.7 ? 1.4 MG
  4. ACENOCOUMAROL [Suspect]
     Active Substance: ACENOCOUMAROL
     Indication: Anticoagulant therapy
     Dosage: MEAN DOSE = 2.8 ? 0.5 MG

REACTIONS (4)
  - Intracardiac thrombus [Fatal]
  - Dyspnoea [Fatal]
  - Anticoagulation drug level below therapeutic [Fatal]
  - Maternal exposure during pregnancy [Fatal]
